FAERS Safety Report 20570700 (Version 8)
Quarter: 2022Q3

REPORT INFORMATION
  Report Type: Report from Study
  Country: US (occurrence: US)
  Receive Date: 20220309
  Receipt Date: 20220727
  Transmission Date: 20221027
  Serious: Yes (Disabling, Other)
  Sender: FDA-Public Use
  Company Number: US-NOVARTISPH-NVSC2022US053619

PATIENT
  Sex: Male

DRUGS (2)
  1. ENTRESTO [Suspect]
     Active Substance: SACUBITRIL\VALSARTAN
     Indication: Cardiac failure
     Dosage: UNK, BID
     Route: 048
     Dates: start: 202202
  2. ENTRESTO [Suspect]
     Active Substance: SACUBITRIL\VALSARTAN
     Dosage: UNK, QD
     Route: 048
     Dates: start: 202202

REACTIONS (5)
  - Dizziness postural [Not Recovered/Not Resolved]
  - Orthostatic hypotension [Unknown]
  - Blood pressure systolic decreased [Not Recovered/Not Resolved]
  - Arterial occlusive disease [Unknown]
  - Headache [Unknown]
